FAERS Safety Report 8384964-X (Version None)
Quarter: 2012Q2

REPORT INFORMATION
  Report Type: 
  Country: None (occurrence: None)
  Receive Date: 20120524
  Receipt Date: 20120512
  Transmission Date: 20120825
  Serious: Yes (Other)
  Sender: FDA-Public Use
  Company Number: FR-ELI_LILLY_AND_COMPANY-FR201205006715

PATIENT
  Age: 67 Year
  Sex: Female

DRUGS (1)
  1. BYETTA [Suspect]

REACTIONS (3)
  - DYSPNOEA [None]
  - CHRONIC OBSTRUCTIVE PULMONARY DISEASE [None]
  - FEELING ABNORMAL [None]
